FAERS Safety Report 24356828 (Version 1)
Quarter: 2024Q3

REPORT INFORMATION
  Report Type: Spontaneous
  Country: GB (occurrence: GB)
  Receive Date: 20240924
  Receipt Date: 20240924
  Transmission Date: 20241017
  Serious: Yes (Hospitalization)
  Sender: MYLAN
  Company Number: GB-MYLANLABS-2024M1085276

PATIENT
  Sex: Male

DRUGS (13)
  1. CLOZARIL [Suspect]
     Active Substance: CLOZAPINE
     Indication: Schizophrenia
     Dosage: 450 MILLIGRAM, QD (200 MILLIGRAM AT MORNING 250 MILLIGRAM AT NIGHT)
     Route: 048
     Dates: start: 20170727
  2. ALLOPURINOL [Concomitant]
     Active Substance: ALLOPURINOL
     Dosage: 300 MILLIGRAM (2-3 PER DAY)
     Route: 065
  3. DIAZEPAM [Concomitant]
     Active Substance: DIAZEPAM
     Dosage: 5 MILLIGRAM, (2-3 PER DAY)
     Route: 065
  4. MIRTAZAPINE [Concomitant]
     Active Substance: MIRTAZAPINE
     Dosage: 45 MILLIGRAM, QD (ONCE A DAY)
     Route: 065
  5. LANSOPRAZOLE [Concomitant]
     Active Substance: LANSOPRAZOLE
     Dosage: 200 MILLIGRAM, BID (TWICE A DAY)
     Route: 065
  6. LORAZEPAM [Concomitant]
     Active Substance: LORAZEPAM
     Dosage: 1 MILLIGRAM, QD (ONCE A DAY WHEN REQUIRED)
     Route: 065
  7. NITRAZEPAM [Concomitant]
     Active Substance: NITRAZEPAM
     Dosage: 500 MILLIGRAM, PM (2 AT NIGHT)
     Route: 065
  8. PAROXETINE [Concomitant]
     Active Substance: PAROXETINE
     Dosage: 20 MILLIGRAM, QD (ONCE A DAY)
     Route: 065
  9. PREGABALIN [Concomitant]
     Active Substance: PREGABALIN
     Dosage: 300 MILLIGRAM, BID (TWICE A DAY)
     Route: 065
  10. SOLIFENACIN [Concomitant]
     Active Substance: SOLIFENACIN
     Dosage: 500 MILLIGRAM, QD (ONCE A DAY)
     Route: 065
  11. TRAMADOL [Concomitant]
     Active Substance: TRAMADOL\TRAMADOL HYDROCHLORIDE
     Dosage: 300 MILLIGRAM (1-2 CAPSULES EVER FEW HOURS WHEN REQUIRED)
     Route: 065
  12. AMISULPRIDE [Concomitant]
     Active Substance: AMISULPRIDE
     Dosage: 100 MILLIGRAM, BID (TWICE A DAY)
     Route: 065
  13. PIRENZEPINE [Concomitant]
     Active Substance: PIRENZEPINE
     Dosage: 1 DOSAGE FORM, QID (4 PER DAY)
     Route: 065

REACTIONS (3)
  - Surgery [Unknown]
  - Procedural vomiting [Unknown]
  - Pneumonia [Unknown]
